FAERS Safety Report 21951509 (Version 1)
Quarter: 2023Q1

REPORT INFORMATION
  Report Type: Spontaneous
  Country: US (occurrence: None)
  Receive Date: 20230203
  Receipt Date: 20230203
  Transmission Date: 20230418
  Serious: Yes (Disabling)
  Sender: FDA-Public Use
  Company Number: None

PATIENT
  Age: 90 Year
  Sex: Female
  Weight: 65.77 kg

DRUGS (1)
  1. DOXYCYCLINE HYCLATE [Suspect]
     Active Substance: DOXYCYCLINE HYCLATE
     Indication: Bronchitis
     Dosage: FREQUENCY : DAILY;?
     Route: 048
     Dates: start: 20221017, end: 20221023

REACTIONS (6)
  - Balance disorder [None]
  - Tremor [None]
  - Fall [None]
  - Loss of personal independence in daily activities [None]
  - Asthenia [None]
  - Cerebrovascular accident [None]

NARRATIVE: CASE EVENT DATE: 20221017
